FAERS Safety Report 25682665 (Version 1)
Quarter: 2025Q3

REPORT INFORMATION
  Report Type: Other
  Country: EU (occurrence: EU)
  Receive Date: 20250814
  Receipt Date: 20250814
  Transmission Date: 20251020
  Serious: Yes (Life-Threatening, Hospitalization, Other)
  Sender: BRECKENRIDGE PHARMACEUTICAL, INC.
  Company Number: EU-Breckenridge Pharmaceutical, Inc.-2182498

PATIENT
  Age: 37 Year
  Sex: Male

DRUGS (1)
  1. METHADONE [Suspect]
     Active Substance: METHADONE HYDROCHLORIDE
     Indication: Drug use disorder

REACTIONS (10)
  - Nervous system disorder [Recovered/Resolved]
  - Tricuspid valve incompetence [Unknown]
  - Mitral valve incompetence [Unknown]
  - Myocardial necrosis marker increased [Recovered/Resolved]
  - Lactic acidosis [Recovered/Resolved]
  - Hypocalcaemia [Recovered/Resolved]
  - Hypokalaemia [Recovered/Resolved]
  - Cardiogenic shock [Recovered/Resolved]
  - Acute left ventricular failure [Recovered/Resolved]
  - Toxicity to various agents [Recovered/Resolved]
